FAERS Safety Report 17426684 (Version 2)
Quarter: 2025Q1

REPORT INFORMATION
  Report Type: Report from Study
  Country: CO (occurrence: CO)
  Receive Date: 20200217
  Receipt Date: 20250330
  Transmission Date: 20250409
  Serious: Yes (Death, Life-Threatening, Other)
  Sender: AMGEN
  Company Number: CO-AMGEN-COLSL2020024125

PATIENT
  Age: 85 Year
  Sex: Female

DRUGS (1)
  1. PROLIA [Suspect]
     Active Substance: DENOSUMAB
     Indication: Osteoporosis postmenopausal
     Dosage: 60 MILLIGRAM, Q6MO
     Route: 058
     Dates: start: 20190927, end: 20240923

REACTIONS (3)
  - Death [Fatal]
  - Thrombosis [Recovered/Resolved]
  - Laboratory test abnormal [Recovered/Resolved]

NARRATIVE: CASE EVENT DATE: 20200206
